FAERS Safety Report 10526767 (Version 1)
Quarter: 2014Q4

REPORT INFORMATION
  Report Type: Other
  Country: DE (occurrence: DE)
  Receive Date: 20141020
  Receipt Date: 20141020
  Transmission Date: 20150528
  Serious: Yes (Congenital Anomaly, Other)
  Sender: FDA-Public Use
  Company Number: DE-LUPIN PHARMACEUTICALS INC.-E2B_00002590

PATIENT
  Age: 1 Day
  Sex: Female
  Weight: 3.16 kg

DRUGS (2)
  1. FOLIO FORTE [Concomitant]
     Active Substance: FOLIC ACID\VITAMINS
     Indication: PROPHYLAXIS OF NEURAL TUBE DEFECT
     Route: 064
  2. LAMOTRIGIN [Suspect]
     Active Substance: LAMOTRIGINE
     Indication: BIPOLAR DISORDER
     Route: 064
     Dates: start: 20130402, end: 20140116

REACTIONS (5)
  - Haemangioma [Unknown]
  - Coordination abnormal [Recovering/Resolving]
  - Atrial septal defect [Unknown]
  - Foetal exposure during pregnancy [Unknown]
  - Neonatal asphyxia [Recovered/Resolved]

NARRATIVE: CASE EVENT DATE: 20130402
